FAERS Safety Report 7426046-7 (Version None)
Quarter: 2011Q2

REPORT INFORMATION
  Report Type: 
  Country: None (occurrence: None)
  Receive Date: 20110420
  Receipt Date: 20110415
  Transmission Date: 20111010
  Serious: Yes (Other)
  Sender: FDA-Public Use
  Company Number: CA-ROCHE-772047

PATIENT
  Age: 14 Year
  Sex: Female

DRUGS (7)
  1. PREMARIN [Suspect]
     Dosage: DOSE REDUCED TO 0.625
     Route: 065
     Dates: start: 20110401
  2. OVRAL [Suspect]
     Dosage: DOSE: 0.03
     Route: 065
  3. EMPRACET [Concomitant]
  4. NAPROXEN [Suspect]
     Route: 065
     Dates: end: 20110401
  5. GRAVOL TAB [Concomitant]
  6. PREMARIN [Suspect]
     Dosage: 1.25 UNITS
     Route: 065
     Dates: start: 20100401
  7. PREVACID [Concomitant]

REACTIONS (2)
  - SYNCOPE [None]
  - GASTRIC ULCER [None]
